FAERS Safety Report 9816874 (Version 1)
Quarter: 2014Q1

REPORT INFORMATION
  Report Type: Spontaneous
  Country: US (occurrence: US)
  Receive Date: 20140114
  Receipt Date: 20140114
  Transmission Date: 20141002
  Serious: No
  Sender: FDA-Public Use
  Company Number: US-ENDO PHARMACEUTICALS INC.-ENDC20130034

PATIENT
  Sex: Male

DRUGS (2)
  1. ENDOCET 10MG/325MG [Suspect]
     Indication: BACK INJURY
     Dosage: 10/325MG
     Route: 048
     Dates: start: 201308
  2. HYDROCODONE BITARTRATE / ACETAMINOPHEN 10MG/325MG [Concomitant]
     Indication: BACK INJURY
     Dosage: 10/325MG
     Route: 048
     Dates: end: 2013

REACTIONS (2)
  - Gastrooesophageal reflux disease [Unknown]
  - Condition aggravated [Unknown]
